FAERS Safety Report 8439758-3 (Version None)
Quarter: 2012Q2

REPORT INFORMATION
  Report Type: 
  Country: None (occurrence: None)
  Receive Date: 20120323
  Receipt Date: 20110712
  Transmission Date: 20120825
  Serious: Yes (Hospitalization)
  Sender: FDA-Public Use
  Company Number: 163-21880-11060080

PATIENT
  Age: 50 Year
  Sex: Female

DRUGS (10)
  1. REVLIMID [Suspect]
     Indication: MULTIPLE MYELOMA
     Dosage: 25 MG, 1 IN 1 D, PO
     Route: 048
     Dates: start: 20110509, end: 20110515
  2. DEXAMETHASONE [Concomitant]
  3. VELCADE [Concomitant]
  4. ALLOPURINOL [Concomitant]
  5. LEVAQUIN [Concomitant]
  6. ASPIRIN [Concomitant]
  7. AMBIEN [Concomitant]
  8. ACYCLOVIR [Concomitant]
  9. PROTONIX [Concomitant]
  10. MORPHINE SULFATE INJ [Concomitant]

REACTIONS (1)
  - PULMONARY OEDEMA [None]
